FAERS Safety Report 9479738 (Version 1)
Quarter: 2013Q3

REPORT INFORMATION
  Report Type: Spontaneous
  Country: US (occurrence: US)
  Receive Date: 20130828
  Receipt Date: 20130828
  Transmission Date: 20140515
  Serious: Yes (Hospitalization, Other)
  Sender: FDA-Public Use
  Company Number: US-AMGEN-KDL047034

PATIENT
  Age: 64 Year
  Sex: Female

DRUGS (3)
  1. ENBREL [Suspect]
     Indication: RHEUMATOID ARTHRITIS
     Dosage: 25 MG, 2 TIMES/WK
     Route: 058
     Dates: start: 19980101
  2. PREDNISONE [Concomitant]
  3. CELECOXIB [Concomitant]

REACTIONS (5)
  - Osteoporotic fracture [Unknown]
  - Osteoporosis [Unknown]
  - Diabetes mellitus [Unknown]
  - Knee arthroplasty [Unknown]
  - Sjogren^s syndrome [Unknown]
